FAERS Safety Report 19094834 (Version 1)
Quarter: 2021Q2

REPORT INFORMATION
  Report Type: Spontaneous
  Country: DE (occurrence: DE)
  Receive Date: 20210405
  Receipt Date: 20210405
  Transmission Date: 20210717
  Serious: Yes (Other)
  Sender: FDA-Public Use
  Company Number: DE-ESPERIONTHERAPEUTICS-2021DEU00635

PATIENT
  Age: 79 Year
  Sex: Female
  Weight: 81.72 kg

DRUGS (1)
  1. NILEMDO [Suspect]
     Active Substance: BEMPEDOIC ACID
     Indication: HYPERCHOLESTEROLAEMIA
     Dosage: 180 MG, QD
     Route: 048
     Dates: start: 202103

REACTIONS (1)
  - Polyneuropathy [Recovered/Resolved]
